FAERS Safety Report 4491013-2 (Version None)
Quarter: 2004Q3

REPORT INFORMATION
  Report Type: 
  Country: None (occurrence: None)
  Receive Date: 20040927
  Receipt Date: 20040810
  Transmission Date: 20050211
  Serious: No
  Sender: FDA-Public Use
  Company Number: USA040875101

PATIENT
  Age: 77 Year
  Sex: Male
  Weight: 90 kg

DRUGS (9)
  1. STRATTERA [Suspect]
     Indication: SOMNOLENCE
     Dosage: 40 MG DAY
     Dates: start: 20040806, end: 20040809
  2. SYNTHROID [Concomitant]
  3. PROPOXYPHENE [Concomitant]
  4. ACETYLSALICYLIC ACID SRT [Concomitant]
  5. CELEBREX [Concomitant]
  6. PREVACID [Concomitant]
  7. METOPROLOL SUCCINATE [Concomitant]
  8. ZOCOR [Concomitant]
  9. EFFEXOR [Concomitant]

REACTIONS (1)
  - FEELING ABNORMAL [None]
